FAERS Safety Report 10843591 (Version 1)
Quarter: 2015Q1

REPORT INFORMATION
  Report Type: Report from Study
  Country: US (occurrence: US)
  Receive Date: 20150220
  Receipt Date: 20150220
  Transmission Date: 20150721
  Serious: Yes (Other)
  Sender: FDA-Public Use
  Company Number: US-ABBVIE-14P-163-1270081-00

PATIENT
  Age: 63 Year
  Sex: Female

DRUGS (8)
  1. PREDNISONE. [Concomitant]
     Active Substance: PREDNISONE
     Dosage: FOR 7 DAYS
  2. IRON [Concomitant]
     Active Substance: IRON
     Indication: FULL BLOOD COUNT DECREASED
  3. PREDNISONE. [Concomitant]
     Active Substance: PREDNISONE
     Indication: PRODUCT USED FOR UNKNOWN INDICATION
     Dosage: FOR 7 DAYS
     Dates: start: 20140729
  4. HUMIRA [Suspect]
     Active Substance: ADALIMUMAB
     Indication: CROHN^S DISEASE
     Dates: start: 20140718, end: 20140718
  5. UNSPECIFIED CROHN^S MEDICATION [Concomitant]
     Indication: CROHN^S DISEASE
  6. NEXIUM [Concomitant]
     Active Substance: ESOMEPRAZOLE MAGNESIUM
     Indication: GASTROOESOPHAGEAL REFLUX DISEASE
  7. DELZICOL [Concomitant]
     Active Substance: MESALAMINE
     Indication: CROHN^S DISEASE
  8. TAGAMET [Suspect]
     Active Substance: CIMETIDINE
     Indication: GASTROOESOPHAGEAL REFLUX DISEASE
     Dates: start: 201408

REACTIONS (6)
  - Asthenia [Not Recovered/Not Resolved]
  - Pruritus [Recovering/Resolving]
  - Lupus-like syndrome [Recovering/Resolving]
  - Rash generalised [Unknown]
  - Malaise [Not Recovered/Not Resolved]
  - Drug ineffective [Unknown]

NARRATIVE: CASE EVENT DATE: 201407
